FAERS Safety Report 13141309 (Version 2)
Quarter: 2017Q1

REPORT INFORMATION
  Report Type: Spontaneous
  Country: US (occurrence: US)
  Receive Date: 20170123
  Receipt Date: 20170217
  Transmission Date: 20170428
  Serious: Yes (Other)
  Sender: FDA-Public Use
  Company Number: US-ALLERGAN-1702473US

PATIENT
  Age: 59 Year
  Sex: Female

DRUGS (3)
  1. ARMOUR THYROID [Suspect]
     Active Substance: THYROID, PORCINE
     Indication: THYROID DISORDER
     Dosage: 60 MG, UNK
     Route: 048
  2. ARMOUR THYROID [Suspect]
     Active Substance: THYROID, PORCINE
     Dosage: 105 MG, UNK
     Route: 048
  3. ARMOUR THYROID [Suspect]
     Active Substance: THYROID, PORCINE
     Dosage: 120 MG, UNK
     Route: 048

REACTIONS (17)
  - Intentional product use issue [Unknown]
  - Anger [Unknown]
  - Dry skin [Unknown]
  - Social avoidant behaviour [Unknown]
  - Crying [Unknown]
  - Sensitivity to weather change [Unknown]
  - Parathyroid disorder [Unknown]
  - Constipation [Unknown]
  - Alopecia [Unknown]
  - Bone loss [Unknown]
  - Affective disorder [Unknown]
  - Anxiety [Unknown]
  - Osteoporosis [Not Recovered/Not Resolved]
  - Asthenia [Unknown]
  - Fatigue [Unknown]
  - Weight increased [Unknown]
  - Depression [Unknown]
